FAERS Safety Report 20001076 (Version 2)
Quarter: 2021Q4

REPORT INFORMATION
  Report Type: Spontaneous
  Country: LT (occurrence: LT)
  Receive Date: 20211027
  Receipt Date: 20211209
  Transmission Date: 20220303
  Serious: No
  Sender: FDA-Public Use
  Company Number: LT-PFIZER INC-202101322690

PATIENT

DRUGS (1)
  1. GENOTROPIN [Suspect]
     Active Substance: SOMATROPIN
     Dosage: SFDPO 2MG/DOSE 1 DOSE 1 EA CARTWC

REACTIONS (2)
  - Device leakage [Unknown]
  - Device use issue [Unknown]
